FAERS Safety Report 20726609 (Version 4)
Quarter: 2023Q2

REPORT INFORMATION
  Report Type: Report from Study
  Country: US (occurrence: US)
  Receive Date: 20220419
  Receipt Date: 20230607
  Transmission Date: 20230722
  Serious: Yes (Other)
  Sender: FDA-Public Use
  Company Number: US-JAZZ-2021-US-021277

PATIENT
  Age: 51 Year
  Sex: Male

DRUGS (6)
  1. XYREM [Suspect]
     Active Substance: SODIUM OXYBATE
     Indication: Narcolepsy
     Dosage: 2.25 GRAM, BID
     Route: 048
     Dates: start: 201212, end: 201301
  2. XYREM [Suspect]
     Active Substance: SODIUM OXYBATE
     Indication: Cataplexy
     Dosage: DOSE ADJUSTMENTS
     Route: 048
     Dates: start: 201301, end: 2015
  3. XYREM [Suspect]
     Active Substance: SODIUM OXYBATE
     Dosage: 4.5 GRAM, BID
     Route: 048
     Dates: start: 201510
  4. METHYLPHENIDATE [Interacting]
     Active Substance: METHYLPHENIDATE
     Indication: Product used for unknown indication
     Dosage: 0010
     Dates: start: 20160501
  5. LEVOTHYROXINE [Concomitant]
     Active Substance: LEVOTHYROXINE
     Indication: Product used for unknown indication
     Dosage: 0000
     Dates: start: 20160816
  6. CHANTIX [Concomitant]
     Active Substance: VARENICLINE TARTRATE
     Indication: Product used for unknown indication
     Dosage: UNK
     Dates: start: 20230201

REACTIONS (7)
  - Deafness [Unknown]
  - Osmotic demyelination syndrome [Unknown]
  - Central nervous system lesion [Unknown]
  - Back pain [Unknown]
  - Muscle spasms [Recovering/Resolving]
  - Hyperhidrosis [Unknown]
  - Inguinal hernia [Not Recovered/Not Resolved]

NARRATIVE: CASE EVENT DATE: 20210720
